FAERS Safety Report 9158806 (Version 1)
Quarter: 2013Q1

REPORT INFORMATION
  Report Type: Report from Study
  Country: US (occurrence: US)
  Receive Date: 20130225
  Receipt Date: 20130225
  Transmission Date: 20140127
  Serious: Yes (Other)
  Sender: FDA-Public Use
  Company Number: US-RB-009707-10

PATIENT
  Age: 53 Year
  Sex: Female

DRUGS (3)
  1. SUBOXONE TABLET [Suspect]
     Indication: DRUG DEPENDENCE
     Route: 060
     Dates: start: 20100510, end: 201011
  2. HEROIN [Suspect]
     Indication: PRODUCT USED FOR UNKNOWN INDICATION
     Dosage: DOSING DETAILS UNKNOWN
     Route: 065
  3. ALEVE [Concomitant]
     Indication: ARTHRITIS
     Dosage: DOSING DETAILS UNKNOWN, USING ON AND OFF
     Route: 065
     Dates: start: 1988

REACTIONS (10)
  - Drug withdrawal syndrome [Recovered/Resolved]
  - Insomnia [Recovered/Resolved]
  - Pyrexia [Recovered/Resolved]
  - Cough [Recovered/Resolved]
  - Swollen tongue [Recovered/Resolved]
  - Tremor [Recovered/Resolved]
  - Nasopharyngitis [Recovered/Resolved]
  - Somnolence [Recovered/Resolved]
  - Depression [Not Recovered/Not Resolved]
  - Product taste abnormal [Recovered/Resolved]
